FAERS Safety Report 9127592 (Version 1)
Quarter: 2013Q1

REPORT INFORMATION
  Report Type: Spontaneous
  Country: GB (occurrence: GB)
  Receive Date: 20130228
  Receipt Date: 20130228
  Transmission Date: 20140127
  Serious: Yes (Other)
  Sender: FDA-Public Use
  Company Number: GB-JNJFOC-20130214202

PATIENT
  Sex: Female

DRUGS (6)
  1. DOXORUBICIN [Suspect]
     Indication: EWING^S SARCOMA
     Dosage: ADMINISTERED OVER 2 DAYS FOR 14 DAY CYCLE, DOSE REDUCTION AT 20% FOR CYCLE 1
     Route: 042
  2. VINCRISTINE [Suspect]
     Indication: EWING^S SARCOMA
     Dosage: 1.4 MG/M2, MAXIMUN 2 MG, ADMINISTERED OVER 2 DAYS OF 14 DAY CYCLE, DOSE REDUCTION AT 20% FOR CYCLE 1
     Route: 065
  3. CYCLOPHOSPHAMIDE [Suspect]
     Indication: EWING^S SARCOMA
     Dosage: ADMINISTERTED OVER 2 DAYS OF 14 DAY CYCLE, DOSE REDUCED BY 20% AT FIRST CYCLE
     Route: 065
  4. IFOSFAMIDE [Suspect]
     Indication: EWING^S SARCOMA
     Dosage: FRACTIONATED OVER 5 DAYS, 14 DAYS CYCLE
     Route: 065
  5. ETOPOSIDE [Suspect]
     Indication: EWING^S SARCOMA
     Dosage: FRACTIONATED OVER 5 DAYS, 14 DAYS CYCLE
     Route: 065
  6. GRANULOCYTE COLONY-STIMULATING FACTOR (GCSF) [Concomitant]
     Indication: PALLIATIVE CARE
     Route: 065

REACTIONS (2)
  - Neuropathy peripheral [Unknown]
  - Off label use [Unknown]
